FAERS Safety Report 14131545 (Version 2)
Quarter: 2017Q4

REPORT INFORMATION
  Report Type: Spontaneous
  Country: FR (occurrence: FR)
  Receive Date: 20171026
  Receipt Date: 20171106
  Transmission Date: 20180321
  Serious: Yes (Hospitalization, Other)
  Sender: FDA-Public Use
  Company Number: FR-MERCK KGAA-2031631

PATIENT
  Age: 70 Year
  Sex: Female

DRUGS (7)
  1. NOVOTHYROX [Suspect]
     Active Substance: LEVOTHYROXINE SODIUM
     Indication: THYROID CANCER
     Route: 048
     Dates: start: 201704
  2. COUMADIN [Concomitant]
     Active Substance: WARFARIN SODIUM
  3. TRAMADOL (TRAMADOL) [Concomitant]
     Active Substance: TRAMADOL
  4. AERIUS (EBASTINE) [Concomitant]
     Active Substance: EBASTINE
  5. INNOVAIR (BEKFORM) (BECLOMETASONE DIPROPIONATE, FORMATEROL FUMARATE) [Concomitant]
  6. FLECAINE (FLECAINIDE ACETATE) [Concomitant]
  7. VENTOLIN [Concomitant]
     Active Substance: ALBUTEROL SULFATE

REACTIONS (25)
  - Dyspnoea [None]
  - Malaise [None]
  - Feeling abnormal [None]
  - Fatigue [None]
  - Crying [None]
  - Urinary retention [None]
  - Gait disturbance [None]
  - Cardiac failure [None]
  - Loss of personal independence in daily activities [None]
  - Headache [Not Recovered/Not Resolved]
  - Vomiting [Not Recovered/Not Resolved]
  - Loss of consciousness [None]
  - Weight increased [None]
  - Arthropathy [None]
  - Vertigo [Not Recovered/Not Resolved]
  - Feeling cold [None]
  - Sleep disorder [Not Recovered/Not Resolved]
  - Blood thyroid stimulating hormone decreased [None]
  - Cardiac disorder [Not Recovered/Not Resolved]
  - Arrhythmia [None]
  - Angina pectoris [None]
  - Alopecia [None]
  - Diarrhoea [Not Recovered/Not Resolved]
  - Feeding disorder [None]
  - Pollakiuria [None]

NARRATIVE: CASE EVENT DATE: 2017
